FAERS Safety Report 4815565-5 (Version None)
Quarter: 2005Q4

REPORT INFORMATION
  Report Type: 
  Country: None (occurrence: None)
  Receive Date: 20051031
  Receipt Date: 20051018
  Transmission Date: 20060501
  Serious: Yes (Hospitalization, Other)
  Sender: FDA-Public Use
  Company Number: US-AVENTIS-200519235GDDC

PATIENT
  Age: 71 Year
  Sex: Male

DRUGS (4)
  1. DOCETAXEL [Suspect]
     Indication: PROSTATE CANCER
     Dates: start: 20050926, end: 20050926
  2. DOCETAXEL [Suspect]
     Dates: start: 20051003, end: 20051003
  3. DOCETAXEL [Suspect]
     Dates: start: 20051010, end: 20051010
  4. CAPECITABINE [Suspect]
     Dates: start: 20051003, end: 20051013

REACTIONS (6)
  - ATRIOVENTRICULAR BLOCK SECOND DEGREE [None]
  - BLOOD POTASSIUM DECREASED [None]
  - DIARRHOEA [None]
  - DIZZINESS [None]
  - NAUSEA [None]
  - VOMITING [None]
